FAERS Safety Report 12519358 (Version 1)
Quarter: 2016Q2

REPORT INFORMATION
  Report Type: Spontaneous
  Country: NZ (occurrence: NZ)
  Receive Date: 20160630
  Receipt Date: 20160630
  Transmission Date: 20160815
  Serious: Yes (Hospitalization)
  Sender: FDA-Public Use
  Company Number: NZ-ELI_LILLY_AND_COMPANY-NZ201606006237

PATIENT
  Age: 29 Year
  Sex: Male

DRUGS (4)
  1. TERAZOSIN [Concomitant]
     Active Substance: TERAZOSIN\TERAZOSIN HYDROCHLORIDE
     Indication: SALIVA ALTERED
     Dosage: 2 MG, QD
     Route: 048
     Dates: start: 20151218, end: 20151229
  2. CLOZAPINE. [Suspect]
     Active Substance: CLOZAPINE
     Indication: PSYCHOTIC DISORDER
     Dosage: 125 MG, QD
     Route: 048
     Dates: start: 20151209, end: 20151229
  3. CILAZAPRIL [Concomitant]
     Active Substance: CILAZAPRIL ANHYDROUS
     Indication: ESSENTIAL HYPERTENSION
     Dosage: 0.5 MG, QD
     Route: 048
     Dates: start: 20151217
  4. OLANZAPINE. [Suspect]
     Active Substance: OLANZAPINE
     Indication: PSYCHOTIC DISORDER
     Dosage: 5 MG, QD
     Route: 048

REACTIONS (5)
  - Pericardial effusion [Recovered/Resolved with Sequelae]
  - C-reactive protein increased [Recovered/Resolved with Sequelae]
  - Troponin T increased [Recovered/Resolved with Sequelae]
  - Pleuritic pain [Recovered/Resolved with Sequelae]
  - Tachycardia [Recovered/Resolved with Sequelae]
